FAERS Safety Report 21310490 (Version 2)
Quarter: 2022Q3

REPORT INFORMATION
  Report Type: Report from Study
  Country: US (occurrence: US)
  Receive Date: 20220909
  Receipt Date: 20220930
  Transmission Date: 20221026
  Serious: Yes (Hospitalization, Other)
  Sender: FDA-Public Use
  Company Number: US-SA-SAC20220907000645

PATIENT
  Age: 51 Year
  Sex: Female

DRUGS (2)
  1. ALEMTUZUMAB [Suspect]
     Active Substance: ALEMTUZUMAB
     Indication: Multiple sclerosis
     Dosage: UNK UNK, QD
     Route: 042
     Dates: start: 20190401, end: 20190405
  2. ALEMTUZUMAB [Suspect]
     Active Substance: ALEMTUZUMAB
     Dosage: UNK UNK, QD
     Route: 042

REACTIONS (4)
  - Neoplasm malignant [Unknown]
  - Autoimmune disorder [Unknown]
  - Cerebrovascular accident [Unknown]
  - Infusion related reaction [Unknown]
